FAERS Safety Report 20137866 (Version 2)
Quarter: 2022Q1

REPORT INFORMATION
  Report Type: Spontaneous
  Country: JP (occurrence: JP)
  Receive Date: 20211202
  Receipt Date: 20220304
  Transmission Date: 20220423
  Serious: Yes (Death, Hospitalization, Other)
  Sender: FDA-Public Use
  Company Number: JP-BRISTOL-MYERS SQUIBB COMPANY-BMS-2021-128831

PATIENT
  Age: 57 Year
  Sex: Male

DRUGS (3)
  1. NIVOLUMAB [Suspect]
     Active Substance: NIVOLUMAB
     Indication: Metastases to liver
     Dosage: UNK
     Route: 065
     Dates: start: 202012
  2. IPILIMUMAB [Suspect]
     Active Substance: IPILIMUMAB
     Indication: Metastases to liver
     Dosage: UNK
     Route: 065
     Dates: start: 202012
  3. DEXAMETHASONE [Suspect]
     Active Substance: DEXAMETHASONE
     Indication: SARS-CoV-2 test positive
     Dosage: UNK
     Route: 048
     Dates: start: 2021

REACTIONS (2)
  - Malignant neoplasm progression [Fatal]
  - COVID-19 [Recovered/Resolved]

NARRATIVE: CASE EVENT DATE: 20210101
